FAERS Safety Report 23589138 (Version 2)
Quarter: 2024Q2

REPORT INFORMATION
  Report Type: Report from Study
  Country: US (occurrence: US)
  Receive Date: 20240303
  Receipt Date: 20240521
  Transmission Date: 20240716
  Serious: Yes (Other)
  Sender: FDA-Public Use
  Company Number: US-ABBVIE-5658382

PATIENT
  Sex: Male

DRUGS (1)
  1. IMBRUVICA [Suspect]
     Active Substance: IBRUTINIB
     Indication: Waldenstrom^s macroglobulinaemia
     Route: 048
     Dates: start: 20150901

REACTIONS (6)
  - Cataract [Unknown]
  - Pleural effusion [Recovered/Resolved]
  - Scar [Unknown]
  - Calcinosis [Unknown]
  - Atrial fibrillation [Unknown]
  - Eye infection [Unknown]

NARRATIVE: CASE EVENT DATE: 20230101
